FAERS Safety Report 9457357 (Version 1)
Quarter: 2013Q3

REPORT INFORMATION
  Report Type: Report from Study
  Country: NZ (occurrence: NZ)
  Receive Date: 20130814
  Receipt Date: 20130814
  Transmission Date: 20140515
  Serious: Yes (Death)
  Sender: FDA-Public Use
  Company Number: PHHY2013NZ018004

PATIENT
  Age: 51 Year
  Sex: Male

DRUGS (8)
  1. CLOZARIL [Suspect]
     Indication: SCHIZOPHRENIA
     Dosage: 700 MG, QD
     Route: 048
     Dates: start: 20060320
  2. SODIUM VALPROATE [Concomitant]
     Dosage: 400 MG, BID
     Route: 048
  3. FLUOXETINE [Concomitant]
     Indication: DEPRESSED MOOD
     Dosage: 20 MG, MORNING
     Route: 048
     Dates: start: 200707
  4. AMISULPRIDE [Concomitant]
     Dosage: 500 MG, QD
     Route: 048
     Dates: start: 20130201
  5. RISPERIDONE [Concomitant]
     Dosage: 1 MG, EVENING
     Route: 048
  6. ANTIHYPERTENSIVE DRUGS [Concomitant]
  7. STATIN//SIMVASTATIN [Concomitant]
     Dosage: 20 MG MORNING
     Route: 048
     Dates: start: 200707
  8. BENZTROPINE [Concomitant]
     Dosage: 0.5 MG, BID
     Route: 048

REACTIONS (2)
  - Death [Fatal]
  - Drug ineffective [Unknown]
